FAERS Safety Report 12792436 (Version 1)
Quarter: 2016Q3

REPORT INFORMATION
  Report Type: Spontaneous
  Country: US (occurrence: US)
  Receive Date: 20160927
  Receipt Date: 20160927
  Transmission Date: 20161109
  Serious: No
  Sender: FDA-Public Use
  Company Number: None

PATIENT
  Age: 74 Year
  Sex: Male

DRUGS (1)
  1. DONEPEZIL HCL 10MG TAB PFIZER [Suspect]
     Active Substance: DONEPEZIL HYDROCHLORIDE
     Indication: DEMENTIA ALZHEIMER^S TYPE
     Dosage: 10MG 1/2 TAB ONCE MOUTH
     Route: 048
     Dates: start: 20160811, end: 20160909

REACTIONS (3)
  - Nightmare [None]
  - Anger [None]
  - Agitation [None]

NARRATIVE: CASE EVENT DATE: 20160909
